FAERS Safety Report 10411914 (Version 1)
Quarter: 2014Q3

REPORT INFORMATION
  Report Type: Spontaneous
  Country: US (occurrence: None)
  Receive Date: 20140826
  Receipt Date: 20140826
  Transmission Date: 20150326
  Serious: Yes (Life-Threatening, Hospitalization)
  Sender: FDA-Public Use
  Company Number: None

PATIENT
  Age: 53 Year
  Sex: Male
  Weight: 80.74 kg

DRUGS (1)
  1. HUMIRA [Suspect]
     Active Substance: ADALIMUMAB
     Indication: RHEUMATOID ARTHRITIS
     Route: 058
     Dates: start: 201311

REACTIONS (6)
  - Nausea [None]
  - Dehydration [None]
  - Vomiting [None]
  - Impaired work ability [None]
  - Diarrhoea [None]
  - Weight decreased [None]

NARRATIVE: CASE EVENT DATE: 20140521
